FAERS Safety Report 9119922 (Version 1)
Quarter: 2013Q1

REPORT INFORMATION
  Report Type: Report from Study
  Country: CA (occurrence: CA)
  Receive Date: 20130226
  Receipt Date: 20130226
  Transmission Date: 20140127
  Serious: Yes (Other)
  Sender: FDA-Public Use
  Company Number: CA-JNJFOC-20130212995

PATIENT
  Sex: Male
  Weight: 110 kg

DRUGS (13)
  1. REMICADE [Suspect]
     Indication: ANKYLOSING SPONDYLITIS
     Route: 042
  2. METFORMIN [Concomitant]
     Indication: TYPE 2 DIABETES MELLITUS
     Route: 065
  3. BLOOD PRESSURE MEDICATION NOS [Concomitant]
     Indication: BLOOD PRESSURE
     Route: 065
     Dates: start: 2012
  4. ATORVASTATIN [Concomitant]
     Indication: BLOOD CHOLESTEROL
     Route: 065
  5. PANTOPRAZOLE [Concomitant]
     Indication: HYPERCHLORHYDRIA
     Route: 065
  6. ACCURETIC [Concomitant]
     Indication: BLOOD PRESSURE DECREASED
     Dosage: 20/12.5MG
     Route: 065
  7. LYRICA [Concomitant]
     Indication: NEURALGIA
     Route: 065
  8. CELEBREX [Concomitant]
     Indication: INFLAMMATION
     Route: 065
  9. CELEBREX [Concomitant]
     Indication: PAIN
     Route: 065
  10. TRAMADOL [Concomitant]
     Indication: PAIN
     Route: 065
  11. CYMBALTA [Concomitant]
     Indication: PAIN
     Route: 065
  12. CYMBALTA [Concomitant]
     Indication: ANTIDEPRESSANT THERAPY
     Route: 065
  13. VITAMIN D3 [Concomitant]
     Route: 065

REACTIONS (2)
  - Syncope [Recovered/Resolved]
  - Hyperhidrosis [Recovered/Resolved]
